FAERS Safety Report 5284986-1 (Version None)
Quarter: 2007Q2

REPORT INFORMATION
  Report Type: 
  Country: None (occurrence: None)
  Receive Date: 20070403
  Receipt Date: 20070330
  Transmission Date: 20071010
  Serious: Yes (Death, Other)
  Sender: FDA-Public Use
  Company Number: 2006UW26674

PATIENT
  Age: 52 Year
  Sex: Female
  Weight: 81.8 kg

DRUGS (2)
  1. SEROQUEL [Suspect]
     Indication: DEPRESSION
     Route: 048
     Dates: start: 20000101, end: 20050101
  2. ZYPREXA [Suspect]

REACTIONS (3)
  - DEATH [None]
  - DIABETES MELLITUS [None]
  - PANCREATITIS [None]
